FAERS Safety Report 23403301 (Version 4)
Quarter: 2024Q2

REPORT INFORMATION
  Report Type: Spontaneous
  Country: CH (occurrence: CH)
  Receive Date: 20240116
  Receipt Date: 20240402
  Transmission Date: 20240716
  Serious: Yes (Hospitalization, Other)
  Sender: FDA-Public Use
  Company Number: CH-002147023-NVSC2024CH004165

PATIENT
  Age: 38 Year
  Sex: Female

DRUGS (6)
  1. AIMOVIG [Suspect]
     Active Substance: ERENUMAB-AOOE
     Indication: Migraine
     Dosage: 70 MILLIGRAM
     Route: 065
     Dates: start: 202109, end: 202305
  2. AIMOVIG [Suspect]
     Active Substance: ERENUMAB-AOOE
     Dosage: 140 MILLIGRAM
     Route: 065
     Dates: start: 20231222
  3. VOLTAREN [Concomitant]
     Active Substance: DICLOFENAC SODIUM
     Indication: Product used for unknown indication
     Dosage: UNK
     Route: 065
     Dates: start: 20231213
  4. ONDANSETRON [Concomitant]
     Active Substance: ONDANSETRON
     Indication: Product used for unknown indication
     Dosage: UNK
     Route: 065
     Dates: start: 20231213
  5. ASPIRIN [Concomitant]
     Active Substance: ASPIRIN
     Indication: Product used for unknown indication
     Dosage: UNK
     Route: 065
     Dates: start: 20231213
  6. ELETRIPTAN [Concomitant]
     Active Substance: ELETRIPTAN
     Indication: Product used for unknown indication
     Dosage: UNK
     Route: 065
     Dates: start: 20231213

REACTIONS (42)
  - Lung disorder [Unknown]
  - Meningioma [Unknown]
  - Paraesthesia [Unknown]
  - Myalgia [Unknown]
  - Trichoglossia [Unknown]
  - Paraesthesia oral [Unknown]
  - Vision blurred [Unknown]
  - Brain fog [Unknown]
  - Asthenia [Unknown]
  - Malaise [Unknown]
  - Tachycardia [Unknown]
  - Dizziness [Unknown]
  - Gait disturbance [Unknown]
  - Head discomfort [Unknown]
  - Dyspnoea exertional [Unknown]
  - Nausea [Unknown]
  - Fatigue [Unknown]
  - Performance status decreased [Unknown]
  - Idiopathic environmental intolerance [Unknown]
  - Chest discomfort [Unknown]
  - Blister [Unknown]
  - Pruritus [Unknown]
  - Discomfort [Unknown]
  - Muscle tightness [Unknown]
  - Dysphonia [Unknown]
  - Peripheral coldness [Unknown]
  - Cold sweat [Unknown]
  - Heart rate increased [Unknown]
  - Nervousness [Unknown]
  - Cough [Unknown]
  - Muscle spasms [Unknown]
  - Pain in extremity [Unknown]
  - Body temperature increased [Unknown]
  - Drug ineffective [Unknown]
  - Erythema [Unknown]
  - Vertigo [Unknown]
  - Irritability [Unknown]
  - Nervousness [Unknown]
  - Hypersensitivity [Unknown]
  - Dyspnoea [Unknown]
  - Papule [Unknown]
  - Fixed eruption [Unknown]

NARRATIVE: CASE EVENT DATE: 20230529
